FAERS Safety Report 14519266 (Version 3)
Quarter: 2018Q2

REPORT INFORMATION
  Report Type: Report from Study
  Country: AR (occurrence: AR)
  Receive Date: 20180212
  Receipt Date: 20180517
  Transmission Date: 20180711
  Serious: Yes (Hospitalization)
  Sender: FDA-Public Use
  Company Number: AR-ACTELION-A-CH2018-167172

PATIENT
  Age: 53 Year
  Sex: Female
  Weight: 54 kg

DRUGS (1)
  1. OPSUMIT [Suspect]
     Active Substance: MACITENTAN
     Indication: PULMONARY ARTERIAL HYPERTENSION
     Dosage: UNK
     Route: 048
     Dates: start: 20170117

REACTIONS (4)
  - Pyrexia [Unknown]
  - White blood cell count increased [Unknown]
  - Sputum purulent [Unknown]
  - Pneumonia [Unknown]

NARRATIVE: CASE EVENT DATE: 20180201
